FAERS Safety Report 24861274 (Version 1)
Quarter: 2025Q1

REPORT INFORMATION
  Report Type: Spontaneous
  Country: US (occurrence: US)
  Receive Date: 20250120
  Receipt Date: 20250120
  Transmission Date: 20250408
  Serious: No
  Sender: JOHNSON AND JOHNSON
  Company Number: US-JNJFOC-20250110427

PATIENT
  Sex: Female

DRUGS (1)
  1. RYBREVANT [Suspect]
     Active Substance: AMIVANTAMAB-VMJW
     Indication: Lung neoplasm malignant

REACTIONS (2)
  - Rash [Recovering/Resolving]
  - Herpes zoster [Unknown]
